FAERS Safety Report 9167848 (Version 2)
Quarter: 2013Q1

REPORT INFORMATION
  Report Type: Spontaneous
  Country: US (occurrence: None)
  Receive Date: 20130304
  Receipt Date: 20130318
  Transmission Date: 20140127
  Serious: Yes (Other)
  Sender: FDA-Public Use
  Company Number: 2013P1002529

PATIENT
  Age: 26 Year
  Sex: Female

DRUGS (3)
  1. MYORISAN [Suspect]
     Dates: start: 20121226
  2. BIRTH CONTROL PILLS [Concomitant]
  3. DEPO SHOT [Concomitant]

REACTIONS (4)
  - Pregnancy on oral contraceptive [None]
  - Exposure during pregnancy [None]
  - Treatment noncompliance [None]
  - Pregnancy with injectable contraceptive [None]
